FAERS Safety Report 8301477-1 (Version None)
Quarter: 2012Q2

REPORT INFORMATION
  Report Type: 
  Country: None (occurrence: None)
  Receive Date: 20120420
  Receipt Date: 20120414
  Transmission Date: 20120825
  Serious: Yes (Other)
  Sender: FDA-Public Use
  Company Number: PHHY2012US032095

PATIENT
  Age: 64 Year
  Sex: Female

DRUGS (2)
  1. METRONIDAZOLE [Suspect]
     Indication: CLOSTRIDIUM DIFFICILE COLITIS
     Dosage: 65 G, CUMULATIVE DOSE
  2. PROCHLORPERAZINE [Concomitant]
     Indication: NAUSEA

REACTIONS (17)
  - PAIN IN EXTREMITY [None]
  - MUSCULAR WEAKNESS [None]
  - HYPERCAPNIA [None]
  - PROTRUSION TONGUE [None]
  - DYSPHONIA [None]
  - DYSARTHRIA [None]
  - POLYNEUROPATHY [None]
  - LETHARGY [None]
  - PARESIS [None]
  - DYSKINESIA [None]
  - TONGUE PARALYSIS [None]
  - TOXIC ENCEPHALOPATHY [None]
  - HYPOXIA [None]
  - ATAXIA [None]
  - PARAESTHESIA [None]
  - CONFUSIONAL STATE [None]
  - HYPOREFLEXIA [None]
